FAERS Safety Report 9324493 (Version 2)
Quarter: 2013Q3

REPORT INFORMATION
  Report Type: Spontaneous
  Country: US (occurrence: US)
  Receive Date: 20130603
  Receipt Date: 20130731
  Transmission Date: 20140515
  Serious: Yes (Other)
  Sender: FDA-Public Use
  Company Number: PHEH2013US011838

PATIENT
  Age: 57 Year
  Sex: Female
  Weight: 62.59 kg

DRUGS (2)
  1. GILENYA [Suspect]
     Indication: MULTIPLE SCLEROSIS
     Dosage: 0.5 MG, QD
     Route: 048
     Dates: start: 20130528
  2. MYSOLINE [Concomitant]
     Dosage: 100 MG, BID

REACTIONS (3)
  - Blood pressure decreased [Unknown]
  - Bradycardia [Recovered/Resolved]
  - Electrocardiogram T wave abnormal [Recovered/Resolved]
